FAERS Safety Report 19747654 (Version 1)
Quarter: 2021Q3

REPORT INFORMATION
  Report Type: Spontaneous
  Country: JP (occurrence: JP)
  Receive Date: 20210826
  Receipt Date: 20210826
  Transmission Date: 20211014
  Serious: Yes (Other)
  Sender: FDA-Public Use
  Company Number: JP-LUPIN PHARMACEUTICALS INC.-2021-15770

PATIENT

DRUGS (1)
  1. SULFAMETHOXAZOLE AND TRIMETHOPRIM [Suspect]
     Active Substance: SULFAMETHOXAZOLE\TRIMETHOPRIM
     Indication: PNEUMOCYSTIS JIROVECII PNEUMONIA
     Dosage: UNK, QD (PROPHYLAXIS FROM DAY (?7) TO DAY (?1) AND AFTER ENGRAFTMENT; ONE SINGLE?STRENGTH TABLET DAI
     Route: 048

REACTIONS (2)
  - Stenotrophomonas infection [Recovered/Resolved]
  - Neutropenia [Recovered/Resolved]
